FAERS Safety Report 12314620 (Version 1)
Quarter: 2016Q2

REPORT INFORMATION
  Report Type: Spontaneous
  Country: US (occurrence: US)
  Receive Date: 20160428
  Receipt Date: 20160428
  Transmission Date: 20160815
  Serious: Yes (Death, Other)
  Sender: FDA-Public Use
  Company Number: US-BRISTOL-MYERS SQUIBB COMPANY-BMS-2016-031240

PATIENT
  Sex: Female
  Weight: 45.3 kg

DRUGS (1)
  1. ELIQUIS [Suspect]
     Active Substance: APIXABAN
     Indication: CEREBROVASCULAR ACCIDENT PROPHYLAXIS
     Route: 048

REACTIONS (14)
  - Cardiac pacemaker insertion [Unknown]
  - Cardiac ablation [Unknown]
  - Urinary tract infection [Unknown]
  - Body height decreased [Unknown]
  - General physical health deterioration [Unknown]
  - Weight decreased [Unknown]
  - Dehydration [Unknown]
  - Death [Fatal]
  - Ulcer haemorrhage [Unknown]
  - Lower limb fracture [Unknown]
  - Fall [Unknown]
  - Hypotension [Unknown]
  - Nephrectomy [Unknown]
  - Knee arthroplasty [Unknown]
